FAERS Safety Report 17856549 (Version 2)
Quarter: 2020Q3

REPORT INFORMATION
  Report Type: Spontaneous
  Country: US (occurrence: US)
  Receive Date: 20200603
  Receipt Date: 20200803
  Transmission Date: 20201103
  Serious: Yes (Death, Hospitalization, Other)
  Sender: FDA-Public Use
  Company Number: US-009507513-2006USA001145

PATIENT
  Sex: Male

DRUGS (3)
  1. KEYTRUDA [Suspect]
     Active Substance: PEMBROLIZUMAB
     Indication: LUNG NEOPLASM MALIGNANT
     Dosage: UNK
     Dates: start: 201911
  2. ALIMTA [Suspect]
     Active Substance: PEMETREXED DISODIUM
     Indication: LUNG NEOPLASM MALIGNANT
     Dosage: UNK
     Dates: start: 201911
  3. CARBOPLATIN. [Suspect]
     Active Substance: CARBOPLATIN
     Indication: LUNG NEOPLASM MALIGNANT
     Dosage: UNK
     Dates: start: 201911

REACTIONS (12)
  - Abdominal discomfort [Unknown]
  - Product dose omission issue [Unknown]
  - Acute left ventricular failure [Fatal]
  - Adverse event [Unknown]
  - Sepsis [Fatal]
  - Cardiogenic shock [Fatal]
  - Fatigue [Unknown]
  - Asthenia [Unknown]
  - Product availability issue [Unknown]
  - Ischaemic cardiomyopathy [Fatal]
  - Rash [Unknown]
  - Diarrhoea [Unknown]
